FAERS Safety Report 7201246-X (Version None)
Quarter: 2010Q4

REPORT INFORMATION
  Report Type: 
  Country: None (occurrence: None)
  Receive Date: 20101229
  Receipt Date: 20101221
  Transmission Date: 20110411
  Serious: Yes (Death, Other)
  Sender: FDA-Public Use
  Company Number: PHHY2010JP86466

PATIENT
  Age: 55 Year
  Sex: Male

DRUGS (12)
  1. VINCRISTINE [Suspect]
     Indication: LEUKAEMIA
     Dosage: UNK
  2. DOXORUBICIN HCL [Suspect]
     Indication: LEUKAEMIA
     Dosage: UNK
  3. DEXAMETHASONE [Suspect]
     Indication: LEUKAEMIA
     Dosage: UNK
  4. METHOTREXATE [Suspect]
     Indication: LEUKAEMIA
     Dosage: UNK
  5. CYTARABINE [Suspect]
     Indication: LEUKAEMIA
     Dosage: UNK
  6. ETOPOSIDE [Suspect]
     Indication: LEUKAEMIA
     Dosage: UNK
  7. PREDNISOLONE [Suspect]
     Indication: LEUKAEMIA
     Dosage: UNK
  8. CARBOPLATIN [Suspect]
     Indication: LEUKAEMIA
     Dosage: UNK
  9. GEMCITABINE [Suspect]
     Indication: LEUKAEMIA
     Dosage: UNK
  10. CISPLATIN [Suspect]
     Indication: LEUKAEMIA
     Dosage: UNK
  11. CYCLOPHOSPHAMIDE [Suspect]
     Indication: LEUKAEMIA
     Dosage: UNK
  12. IFOSFAMIDE [Suspect]
     Indication: LEUKAEMIA
     Dosage: UNK

REACTIONS (24)
  - ALANINE AMINOTRANSFERASE INCREASED [None]
  - ANURIA [None]
  - ASPARTATE AMINOTRANSFERASE INCREASED [None]
  - BK VIRUS INFECTION [None]
  - BLOOD CREATININE INCREASED [None]
  - BLOOD LACTATE DEHYDROGENASE INCREASED [None]
  - DYSPNOEA [None]
  - EMPHYSEMA [None]
  - HEPATOSPLENOMEGALY [None]
  - LUNG NEOPLASM [None]
  - LYMPHADENOPATHY MEDIASTINAL [None]
  - MALIGNANT NEOPLASM PROGRESSION [None]
  - OLIGURIA [None]
  - PERIPHERAL T-CELL LYMPHOMA UNSPECIFIED [None]
  - PLEURAL EFFUSION [None]
  - POLLAKIURIA [None]
  - POLYOMAVIRUS-ASSOCIATED NEPHROPATHY [None]
  - PROTEINURIA [None]
  - PYREXIA [None]
  - RED BLOOD CELLS URINE [None]
  - RENAL FAILURE ACUTE [None]
  - THROMBOCYTOPENIA [None]
  - WHITE BLOOD CELL COUNT INCREASED [None]
  - WHITE BLOOD CELLS URINE POSITIVE [None]
